FAERS Safety Report 6419371-X (Version None)
Quarter: 2009Q4

REPORT INFORMATION
  Report Type: 
  Country: None (occurrence: None)
  Receive Date: 20091027
  Receipt Date: 20091014
  Transmission Date: 20100525
  Serious: Yes (Other)
  Sender: FDA-Public Use
  Company Number: 2009AL006598

PATIENT
  Age: 29 Year
  Sex: Female

DRUGS (3)
  1. LIDOCAINE HYDROCHLORIDE 2% [Suspect]
  2. FENTANYL TRANSDERMAL SYSTEM [Suspect]
  3. BUPIVACAINE [Concomitant]

REACTIONS (2)
  - DRUG HYPERSENSITIVITY [None]
  - ERYTHEMA MULTIFORME [None]
